FAERS Safety Report 5528896-0 (Version None)
Quarter: 2007Q4

REPORT INFORMATION
  Report Type: 
  Country: None (occurrence: None)
  Receive Date: 20071129
  Receipt Date: 20071019
  Transmission Date: 20080405
  Serious: Yes (Other)
  Sender: FDA-Public Use
  Company Number: IL-BRISTOL-MYERS SQUIBB COMPANY-13997507

PATIENT
  Age: 59 Year
  Sex: Male
  Weight: 73 kg

DRUGS (3)
  1. LYSODREN [Suspect]
     Indication: ADRENAL CARCINOMA
     Dates: start: 20060815
  2. SIMVASTATIN [Concomitant]
  3. DEXAMETHASONE [Concomitant]

REACTIONS (5)
  - AMNESIA [None]
  - ASTHENIA [None]
  - NAUSEA [None]
  - VOMITING [None]
  - WEIGHT DECREASED [None]
